FAERS Safety Report 7738099-7 (Version None)
Quarter: 2011Q3

REPORT INFORMATION
  Report Type: 
  Country: None (occurrence: None)
  Receive Date: 20110908
  Receipt Date: 20110901
  Transmission Date: 20111222
  Serious: Yes (Other)
  Sender: FDA-Public Use
  Company Number: AU-PFIZER INC-2011189700

PATIENT
  Sex: Female

DRUGS (5)
  1. BICOR [Concomitant]
     Indication: PALPITATIONS
     Dosage: 5 MG, 1X/DAY
  2. ATIVAN [Concomitant]
     Dosage: 7.5 MG, 1X/DAY
  3. WARFARIN [Concomitant]
  4. SILDENAFIL CITRATE [Suspect]
     Indication: PULMONARY ARTERIAL HYPERTENSION
     Dosage: 25 MG, 3X/DAY
     Route: 048
     Dates: start: 20110801
  5. NEO-MERCAZOLE TAB [Concomitant]
     Dosage: 50 MG, 1X/DAY

REACTIONS (11)
  - MYALGIA [None]
  - FEELING ABNORMAL [None]
  - DEPRESSION [None]
  - FLUSHING [None]
  - VASODILATATION [None]
  - SCIATICA [None]
  - INFLUENZA [None]
  - FEELING HOT [None]
  - BACK PAIN [None]
  - SWELLING FACE [None]
  - CHILLS [None]
